FAERS Safety Report 6457518-X (Version None)
Quarter: 2009Q4

REPORT INFORMATION
  Report Type: 
  Country: None (occurrence: None)
  Receive Date: 20091125
  Receipt Date: 20091113
  Transmission Date: 20100525
  Serious: Yes (Hospitalization)
  Sender: FDA-Public Use
  Company Number: PHHY2009JP48087

PATIENT
  Age: 12 Year
  Sex: Male

DRUGS (1)
  1. TEGRETOL [Suspect]
     Indication: PARTIAL SEIZURES

REACTIONS (5)
  - AGGRESSION [None]
  - ALTERED STATE OF CONSCIOUSNESS [None]
  - MYOCLONUS [None]
  - RESTLESSNESS [None]
  - STATUS EPILEPTICUS [None]
